FAERS Safety Report 6883512-0 (Version None)
Quarter: 2010Q3

REPORT INFORMATION
  Report Type: 
  Country: None (occurrence: None)
  Receive Date: 20100708
  Receipt Date: 20091202
  Transmission Date: 20110219
  Serious: Yes (Other)
  Sender: FDA-Public Use
  Company Number: 2009285241

PATIENT
  Age: 43 Year
  Sex: Male
  Weight: 77.1 kg

DRUGS (4)
  1. CHANTIX [Suspect]
     Indication: SMOKING CESSATION THERAPY
     Dates: start: 20090901
  2. IBUPROFEN [Concomitant]
  3. ALBUTEROL [Concomitant]
  4. ALL OTHER THERAPEUTIC PRODUCTS [Concomitant]

REACTIONS (5)
  - CHEST DISCOMFORT [None]
  - DEPRESSION [None]
  - DYSPNOEA [None]
  - HALLUCINATION [None]
  - SUICIDAL IDEATION [None]
